FAERS Safety Report 8061180 (Version 2)
Quarter: 2013Q4

REPORT INFORMATION
  Report Type: Spontaneous
  Country: US (occurrence: US)
  Receive Date: 20110729
  Receipt Date: 20131216
  Transmission Date: 20140711
  Serious: Yes (Death)
  Sender: FDA-Public Use
  Company Number: US-GLAXOSMITHKLINE-A0938685A

PATIENT
  Age: 77 Year
  Sex: Female

DRUGS (1)
  1. AVANDIA [Suspect]
     Indication: DIABETES MELLITUS
     Route: 048
     Dates: start: 2000

REACTIONS (5)
  - Cardio-respiratory arrest [Fatal]
  - Renal failure [Fatal]
  - Sepsis [Fatal]
  - Cardiac failure congestive [Unknown]
  - Renal failure chronic [Unknown]
